FAERS Safety Report 10149478 (Version 1)
Quarter: 2014Q2

REPORT INFORMATION
  Report Type: Spontaneous
  Country: US (occurrence: None)
  Receive Date: 20140501
  Receipt Date: 20140501
  Transmission Date: 20141212
  Serious: Yes (Other)
  Sender: FDA-Public Use
  Company Number: None

PATIENT
  Age: 47 Year
  Sex: Female
  Weight: 81.65 kg

DRUGS (6)
  1. VENLAFAXINE HYDROCHLORIDE [Suspect]
     Indication: DEPRESSION
     Dosage: 1 DAILY MOUTH
     Route: 048
  2. VENLAFAXINE HYDROCHLORIDE [Suspect]
     Indication: ANXIETY
     Dosage: 1 DAILY MOUTH
     Route: 048
  3. VENLAFAXINE HYDROCHLORIDE [Suspect]
     Indication: PANIC ATTACK
     Dosage: 1 DAILY MOUTH
     Route: 048
  4. TRAZODONE [Concomitant]
  5. VITAMIN D3 [Concomitant]
  6. CLONAZEPAM [Concomitant]

REACTIONS (19)
  - Anger [None]
  - Irritability [None]
  - Depression [None]
  - Anxiety [None]
  - Panic attack [None]
  - Nervousness [None]
  - Decreased appetite [None]
  - Insomnia [None]
  - Tremor [None]
  - Chills [None]
  - Tinnitus [None]
  - Hallucination [None]
  - Nightmare [None]
  - Drug withdrawal syndrome [None]
  - Dysgeusia [None]
  - Parosmia [None]
  - Vertigo [None]
  - Pruritus [None]
  - Drug hypersensitivity [None]
